FAERS Safety Report 12471492 (Version 3)
Quarter: 2016Q3

REPORT INFORMATION
  Report Type: Spontaneous
  Country: SI (occurrence: SI)
  Receive Date: 20160616
  Receipt Date: 20160704
  Transmission Date: 20161109
  Serious: Yes (Life-Threatening)
  Sender: FDA-Public Use
  Company Number: SI-BEH-2016070328

PATIENT
  Age: 30 Year
  Sex: Female

DRUGS (3)
  1. FOLIC ACID. [Concomitant]
     Active Substance: FOLIC ACID
     Indication: PREGNANCY
     Route: 065
  2. CEFTRIAKSON [Suspect]
     Active Substance: CEFTRIAXONE SODIUM
     Indication: ERYTHEMA MIGRANS
     Dosage: 2 G, OD
     Route: 042
     Dates: start: 20160517, end: 20160526
  3. RHOPHYLAC [Suspect]
     Active Substance: HUMAN RHO(D) IMMUNE GLOBULIN
     Indication: RHESUS INCOMPATIBILITY
     Dosage: 300 ?G, OD
     Route: 030
     Dates: start: 20160525, end: 20160525

REACTIONS (1)
  - Rash generalised [Unknown]

NARRATIVE: CASE EVENT DATE: 20160526
